FAERS Safety Report 18746702 (Version 2)
Quarter: 2021Q1

REPORT INFORMATION
  Report Type: Spontaneous
  Country: AU (occurrence: AU)
  Receive Date: 20210115
  Receipt Date: 20210211
  Transmission Date: 20210419
  Serious: Yes (Hospitalization, Other)
  Sender: FDA-Public Use
  Company Number: AU-MYLANLABS-2021M1002553

PATIENT
  Sex: Male

DRUGS (1)
  1. CLOZARIL [Suspect]
     Active Substance: CLOZAPINE
     Indication: SCHIZOPHRENIA
     Dosage: 375 MILLIGRAM
     Route: 048
     Dates: start: 20200727, end: 20210112

REACTIONS (4)
  - Malaise [Unknown]
  - Drug ineffective [Unknown]
  - Hospitalisation [Unknown]
  - Mental disorder [Unknown]
